FAERS Safety Report 5967670-8 (Version None)
Quarter: 2008Q4

REPORT INFORMATION
  Report Type: 
  Country: None (occurrence: None)
  Receive Date: 20081126
  Receipt Date: 20081119
  Transmission Date: 20090506
  Serious: Yes (Hospitalization, Other)
  Sender: FDA-Public Use
  Company Number: PHHY2008JP27454

PATIENT
  Age: 70 Year
  Sex: Male

DRUGS (4)
  1. NEORAL [Suspect]
     Indication: IDIOPATHIC PULMONARY FIBROSIS
     Dosage: UNK
     Dates: start: 20080319
  2. PREDNISOLONE [Concomitant]
     Indication: IDIOPATHIC PULMONARY FIBROSIS
     Dosage: 50 MG
     Dates: start: 20080221
  3. PREDNISOLONE [Concomitant]
     Dosage: 50 MG
     Dates: start: 20080319
  4. METHYLPREDNISOLONE 16MG TAB [Concomitant]
     Indication: IDIOPATHIC PULMONARY FIBROSIS
     Dosage: 1 G
     Dates: start: 20080319, end: 20080321

REACTIONS (6)
  - BRONCHOPULMONARY ASPERGILLOSIS [None]
  - HYPERGLYCAEMIA [None]
  - IDIOPATHIC PULMONARY FIBROSIS [None]
  - LUNG ABSCESS [None]
  - MUCORMYCOSIS [None]
  - SPUTUM DISCOLOURED [None]
